FAERS Safety Report 24362586 (Version 5)
Quarter: 2024Q4

REPORT INFORMATION
  Report Type: Spontaneous
  Country: BG (occurrence: BG)
  Receive Date: 20240925
  Receipt Date: 20241122
  Transmission Date: 20250115
  Serious: Yes (Hospitalization, Other)
  Sender: MYLAN
  Company Number: BG-JNJFOC-20240911966

PATIENT
  Age: 62 Year
  Sex: Male

DRUGS (9)
  1. LENALIDOMIDE [Suspect]
     Active Substance: LENALIDOMIDE
     Indication: Plasma cell leukaemia
     Dosage: UNK
     Route: 065
  2. VELCADE [Suspect]
     Active Substance: BORTEZOMIB
     Indication: Plasma cell leukaemia
     Dosage: UNK
     Route: 065
     Dates: start: 202402
  3. DECADRON [Suspect]
     Active Substance: DEXAMETHASONE
     Indication: Plasma cell leukaemia
     Dosage: 20 MG ON DAYS 1, 2, 8, 9, 15, 16, 22 AND 23 FOR EACH 28-DAY CYCLE
     Route: 042
  4. DECADRON [Suspect]
     Active Substance: DEXAMETHASONE
     Dosage: UNK
     Route: 065
  5. BORTEZOMIB [Concomitant]
     Active Substance: BORTEZOMIB
     Dosage: UNK
     Route: 065
  6. DEXAMETHASONE [Concomitant]
     Active Substance: DEXAMETHASONE
     Dosage: UNK
     Route: 065
  7. ISATUXIMAB [Concomitant]
     Active Substance: ISATUXIMAB
     Indication: Product used for unknown indication
     Dosage: 10 MILLIGRAM/KILOGRAM (WEEKLY IN THE FIRST CYCLE AND EVERY TWO WEEKS)
     Route: 042
  8. CARFILZOMIB [Concomitant]
     Active Substance: CARFILZOMIB
     Indication: Product used for unknown indication
     Dosage: 20 MILLIGRAM/SQ. METER (ON DAYS 1 AND 2)
     Route: 042
  9. CARFILZOMIB [Concomitant]
     Active Substance: CARFILZOMIB
     Dosage: 56 MG/M? ON DAYS 8, 9, 15 AND 16 OF CYCLE 1; AND AT THE DOSE OF 56 MG/M? ON DAYS 1, 2, 8, 9, 15, 16
     Route: 042

REACTIONS (4)
  - Haematotoxicity [Unknown]
  - Thrombocytopenia [Unknown]
  - Drug resistance [Unknown]
  - Off label use [Unknown]
